FAERS Safety Report 6242757-3 (Version None)
Quarter: 2009Q2

REPORT INFORMATION
  Report Type: 
  Country: None (occurrence: None)
  Receive Date: 20090624
  Receipt Date: 20090610
  Transmission Date: 20091009
  Serious: Yes (Other)
  Sender: FDA-Public Use
  Company Number: TR-JNJFOC-20090606386

PATIENT
  Age: 14 Year
  Sex: Female

DRUGS (3)
  1. RISPERIDONE [Suspect]
     Route: 065
  2. RISPERIDONE [Suspect]
     Indication: CONDUCT DISORDER
     Route: 065
  3. VALPROIC ACID SYRUP [Suspect]
     Indication: CONDUCT DISORDER
     Dosage: 20 MG PER KILOGRAM OF BODY WEIGHT DAILY
     Route: 065

REACTIONS (1)
  - BIPOLAR DISORDER [None]
